FAERS Safety Report 11807319 (Version 1)
Quarter: 2015Q4

REPORT INFORMATION
  Report Type: Spontaneous
  Country: JP (occurrence: JP)
  Receive Date: 20151207
  Receipt Date: 20151207
  Transmission Date: 20160305
  Serious: Yes (Other)
  Sender: FDA-Public Use
  Company Number: JP-ABBVIE-15P-087-1514363-00

PATIENT
  Age: 63 Year
  Sex: Male
  Weight: 55 kg

DRUGS (14)
  1. TAKEPRON [Suspect]
     Active Substance: LANSOPRAZOLE
     Indication: HELICOBACTER INFECTION
     Route: 048
     Dates: start: 20140307, end: 20140307
  2. TAKEPRON [Suspect]
     Active Substance: LANSOPRAZOLE
     Route: 065
     Dates: start: 20140308, end: 20140313
  3. CLARITHROMYCIN. [Suspect]
     Active Substance: CLARITHROMYCIN
     Route: 065
     Dates: start: 20140308, end: 20140313
  4. TAKEPRON [Suspect]
     Active Substance: LANSOPRAZOLE
     Route: 065
     Dates: start: 20140314, end: 20140314
  5. PASETOCIN [Suspect]
     Active Substance: AMOXICILLIN
     Indication: HELICOBACTER INFECTION
     Route: 048
     Dates: start: 20140307, end: 20140307
  6. BETAHISTINE MESILATE [Concomitant]
     Active Substance: BETAHISTINE MESILATE
     Indication: PRODUCT USED FOR UNKNOWN INDICATION
     Route: 048
     Dates: start: 201204
  7. CLARITHROMYCIN. [Suspect]
     Active Substance: CLARITHROMYCIN
     Indication: HELICOBACTER INFECTION
     Route: 048
     Dates: start: 20140307, end: 20140307
  8. PASETOCIN [Suspect]
     Active Substance: AMOXICILLIN
     Route: 065
     Dates: start: 20140314, end: 20140314
  9. AMLODIPINE BESILATE [Concomitant]
     Active Substance: AMLODIPINE BESYLATE
     Indication: PRODUCT USED FOR UNKNOWN INDICATION
     Route: 048
     Dates: start: 201204
  10. CLARITHROMYCIN. [Suspect]
     Active Substance: CLARITHROMYCIN
     Route: 065
     Dates: start: 20140314, end: 20140314
  11. CLOTIAZEPAM [Concomitant]
     Active Substance: CLOTIAZEPAM
     Indication: PRODUCT USED FOR UNKNOWN INDICATION
     Route: 048
     Dates: start: 201204
  12. PASETOCIN [Suspect]
     Active Substance: AMOXICILLIN
     Route: 065
     Dates: start: 20140308, end: 20140313
  13. MECOBALAMIN [Concomitant]
     Active Substance: METHYLCOBALAMIN
     Indication: PRODUCT USED FOR UNKNOWN INDICATION
     Route: 048
     Dates: start: 201204
  14. ADENOSINE TRIPHOSPHATE, DISODIUM SA [Concomitant]
     Indication: PRODUCT USED FOR UNKNOWN INDICATION
     Route: 048
     Dates: start: 201204

REACTIONS (1)
  - Colitis ulcerative [Recovering/Resolving]

NARRATIVE: CASE EVENT DATE: 20140310
